FAERS Safety Report 4910661-6 (Version None)
Quarter: 2006Q1

REPORT INFORMATION
  Report Type: 
  Country: None (occurrence: None)
  Receive Date: 20060210
  Receipt Date: 20060210
  Transmission Date: 20060701
  Serious: No
  Sender: FDA-Public Use
  Company Number: None

PATIENT
  Sex: Female

DRUGS (2)
  1. ZYRTEC [Suspect]
     Dosage: TABLET 10 MG BOTTLE SMALL SQUARE
  2. NORVASC [Suspect]
     Dosage: TABLET 10 MG BOTTLE SMALL SQUARE

REACTIONS (3)
  - DRUG DISPENSING ERROR [None]
  - MEDICATION ERROR [None]
  - WRONG DRUG ADMINISTERED [None]
